FAERS Safety Report 18350257 (Version 2)
Quarter: 2020Q4

REPORT INFORMATION
  Report Type: Spontaneous
  Country: DE (occurrence: DE)
  Receive Date: 20201006
  Receipt Date: 20201012
  Transmission Date: 20210114
  Serious: Yes (Other)
  Sender: FDA-Public Use
  Company Number: DE-ABBVIE-20K-062-3596979-00

PATIENT
  Age: 29 Year
  Sex: Female

DRUGS (2)
  1. ADALIMUMAB [Suspect]
     Active Substance: ADALIMUMAB
     Route: 058
     Dates: start: 202008
  2. ADALIMUMAB [Suspect]
     Active Substance: ADALIMUMAB
     Indication: CROHN^S DISEASE
     Route: 058
     Dates: end: 202003

REACTIONS (3)
  - Plasmapheresis [Recovered/Resolved]
  - Neuromyelitis optica spectrum disorder [Unknown]
  - Blindness unilateral [Unknown]

NARRATIVE: CASE EVENT DATE: 202009
